FAERS Safety Report 4703647-8 (Version None)
Quarter: 2005Q2

REPORT INFORMATION
  Report Type: 
  Country: None (occurrence: None)
  Receive Date: 20050208
  Receipt Date: 20050208
  Transmission Date: 20051028
  Serious: Yes (Other)
  Sender: FDA-Public Use
  Company Number: None

PATIENT
  Sex: Male
  Weight: 89.55 kg

DRUGS (1)
  1. ENDOCET (GENERIC PERCOCET) [Suspect]
     Indication: SICKLE CELL ANAEMIA
     Dosage: ONE - TWO PO Q 4-6 HOURS PRN
     Route: 048
     Dates: start: 20040101

REACTIONS (1)
  - DYSPEPSIA [None]
